FAERS Safety Report 16882699 (Version 1)
Quarter: 2019Q4

REPORT INFORMATION
  Report Type: Spontaneous
  Country: US (occurrence: US)
  Receive Date: 20191003
  Receipt Date: 20191003
  Transmission Date: 20200122
  Serious: Yes (Other)
  Sender: FDA-Public Use
  Company Number: US-ASTRAZENECA-2019SF38497

PATIENT
  Age: 58 Year
  Sex: Female

DRUGS (1)
  1. IMFINZI [Suspect]
     Active Substance: DURVALUMAB
     Indication: NON-SMALL CELL LUNG CANCER
     Route: 042

REACTIONS (6)
  - Lung opacity [Unknown]
  - Metastases to central nervous system [Unknown]
  - Adrenal mass [Unknown]
  - Headache [Unknown]
  - Dyspnoea exertional [Unknown]
  - Fatigue [Unknown]
